FAERS Safety Report 5564115-7 (Version None)
Quarter: 2007Q4

REPORT INFORMATION
  Report Type: 
  Country: None (occurrence: None)
  Receive Date: 20071217
  Receipt Date: 20071205
  Transmission Date: 20080405
  Serious: Yes (Hospitalization, Other)
  Sender: FDA-Public Use
  Company Number: ES-PFIZER INC-2007102320

PATIENT
  Age: 81 Year
  Sex: Female

DRUGS (5)
  1. CABERGOLINE [Suspect]
     Indication: PARKINSON'S DISEASE
     Dosage: DAILY DOSE:6MG
  2. ERYTHROMYCIN [Interacting]
     Indication: PNEUMONIA
     Dosage: DAILY DOSE:1500MG
  3. L-DOPA [Concomitant]
     Indication: PARKINSON'S DISEASE
     Dosage: DAILY DOSE:800MG
  4. HALAZEPAM [Concomitant]
     Dosage: DAILY DOSE:20MG
  5. AMLODIPINE [Concomitant]

REACTIONS (8)
  - AGITATION [None]
  - CHOREA [None]
  - CONFUSIONAL STATE [None]
  - DISORIENTATION [None]
  - DRUG INTERACTION [None]
  - DYSKINESIA [None]
  - HALLUCINATION [None]
  - PNEUMONIA [None]
